FAERS Safety Report 23743691 (Version 1)
Quarter: 2024Q2

REPORT INFORMATION
  Report Type: Spontaneous
  Country: KR (occurrence: None)
  Receive Date: 20240415
  Receipt Date: 20240415
  Transmission Date: 20240716
  Serious: Yes (Death)
  Sender: FDA-Public Use
  Company Number: 2024A088860

PATIENT
  Age: 935 Month
  Sex: Female

DRUGS (1)
  1. IMFINZI [Suspect]
     Active Substance: DURVALUMAB
     Indication: Gallbladder cancer
     Dosage: 500MG / 2VIAL
     Route: 042
     Dates: start: 20231227

REACTIONS (1)
  - Metastasis [Fatal]

NARRATIVE: CASE EVENT DATE: 20240218
